FAERS Safety Report 15947274 (Version 2)
Quarter: 2019Q1

REPORT INFORMATION
  Report Type: Other
  Country: KR (occurrence: KR)
  Receive Date: 20190211
  Receipt Date: 20190211
  Transmission Date: 20190417
  Serious: Yes (Other)
  Sender: FDA-Public Use
  Company Number: KR-DENTSPLY-2019SCDP000081

PATIENT
  Age: 13 Year
  Sex: Male

DRUGS (1)
  1. LIDOCAINE. [Suspect]
     Active Substance: LIDOCAINE
     Indication: SKIN PAPILLOMA
     Dosage: INJECTION
     Dates: start: 201205

REACTIONS (1)
  - Necrosis [Recovered/Resolved]

NARRATIVE: CASE EVENT DATE: 201205
